FAERS Safety Report 8716357 (Version 2)
Quarter: 2013Q4

REPORT INFORMATION
  Report Type: Spontaneous
  Country: US (occurrence: US)
  Receive Date: 20120810
  Receipt Date: 20131101
  Transmission Date: 20140711
  Serious: No
  Sender: FDA-Public Use
  Company Number: US-009507513-1205USA04750

PATIENT
  Age: 75 Year
  Sex: Female

DRUGS (2)
  1. AZASITE [Suspect]
     Indication: ROSACEA
     Dosage: UNK, BID
     Route: 047
     Dates: start: 20120507, end: 20120509
  2. AZASITE [Suspect]
     Indication: BLEPHARITIS
     Dosage: UNK UNK, QD
     Route: 047
     Dates: start: 20120510, end: 20120607

REACTIONS (3)
  - Eye irritation [Recovering/Resolving]
  - Off label use [Unknown]
  - Incorrect drug administration duration [Unknown]
